FAERS Safety Report 6398623-6 (Version None)
Quarter: 2009Q4

REPORT INFORMATION
  Report Type: 
  Country: None (occurrence: None)
  Receive Date: 20091013
  Receipt Date: 20091002
  Transmission Date: 20100525
  Serious: Yes (Other)
  Sender: FDA-Public Use
  Company Number: SG-ROCHE-659850

PATIENT
  Age: 41 Year
  Sex: Female
  Weight: 90 kg

DRUGS (18)
  1. TAMIFLU [Suspect]
     Route: 048
     Dates: start: 20090829, end: 20090902
  2. WARFARIN SODIUM [Concomitant]
     Dates: end: 20090901
  3. WARFARIN SODIUM [Concomitant]
  4. DIFFLAM [Concomitant]
  5. FOLIC ACID [Concomitant]
  6. GABAPENTIN [Concomitant]
  7. GLIPIZIDE [Concomitant]
  8. LOVASTATIN [Concomitant]
  9. METFORMIN HYDROCHLORIDE [Concomitant]
  10. NIFEDIPINE [Concomitant]
  11. OMEPRAZOLE [Concomitant]
  12. OXYCONTIN [Concomitant]
  13. OXYNORM [Concomitant]
  14. ACETAMINOPHEN [Concomitant]
  15. ALBUTEROL [Concomitant]
     Dosage: DOSAGE FORM E.G: TAB, CAP.2 DOSAGE FORM.
  16. SENNA [Concomitant]
     Dosage: EG: TAB, CAP
  17. VALSARTAN [Concomitant]
  18. VENLAFAXINE [Concomitant]

REACTIONS (1)
  - INTERNATIONAL NORMALISED RATIO INCREASED [None]
